FAERS Safety Report 4763710-2 (Version None)
Quarter: 2005Q3

REPORT INFORMATION
  Report Type: 
  Country: None (occurrence: None)
  Receive Date: 20050908
  Receipt Date: 20050829
  Transmission Date: 20060218
  Serious: Yes (Disabling)
  Sender: FDA-Public Use
  Company Number: FR-GLAXOSMITHKLINE-B0392417A

PATIENT
  Sex: Female

DRUGS (3)
  1. LAMICTAL [Suspect]
     Indication: EPILEPSY
     Route: 048
  2. LUTERAN [Suspect]
     Indication: MENOPAUSE
     Route: 048
     Dates: start: 20050301
  3. EPITOMAX [Concomitant]
     Indication: EPILEPSY
     Dosage: 50MG PER DAY
     Route: 048

REACTIONS (4)
  - DRUG INTERACTION [None]
  - NAUSEA [None]
  - VERTIGO [None]
  - VOMITING [None]
